FAERS Safety Report 22870663 (Version 2)
Quarter: 2025Q3

REPORT INFORMATION
  Report Type: Spontaneous
  Country: GB (occurrence: GB)
  Receive Date: 20230828
  Receipt Date: 20250808
  Transmission Date: 20251020
  Serious: Yes (Hospitalization)
  Sender: CHEPLAPHARM
  Company Number: GB-ROCHE-2408772

PATIENT
  Age: 41 Year
  Sex: Female
  Weight: 65.8 kg

DRUGS (4)
  1. CAPECITABINE [Suspect]
     Active Substance: CAPECITABINE
     Indication: Triple negative breast cancer
     Dosage: ON 09/SEP/2019, SHE RECEIVED MOST RECENT DOSE OF CAPECITABINE (1750 MG) PRIOR TO ONSET OF SERIOUS AE
     Route: 048
     Dates: start: 20190830
  2. CAPECITABINE [Suspect]
     Active Substance: CAPECITABINE
     Indication: Triple negative breast cancer
     Dosage: ON 09/SEP/2019, SHE RECEIVED MOST RECENT DOSE OF CAPECITABINE (1750 MG) PRIOR TO ONSET OF SERIOUS AE
     Route: 048
  3. ATEZOLIZUMAB [Suspect]
     Active Substance: ATEZOLIZUMAB
     Indication: Triple negative breast cancer
     Dosage: ON 30/AUG/2019, SHE RECEIVED MOST RECENT DOSE OF BLINDED ATEZOLIZUMAB PRIOR TO ONSET OF SERIOUS AE
     Route: 042
     Dates: start: 20190830
  4. SERTRALINE [Concomitant]
     Active Substance: SERTRALINE HYDROCHLORIDE
     Indication: Pyrexia
     Dates: start: 201804

REACTIONS (1)
  - Tumour associated fever [Recovered/Resolved]

NARRATIVE: CASE EVENT DATE: 20190909
